FAERS Safety Report 13718381 (Version 3)
Quarter: 2017Q3

REPORT INFORMATION
  Report Type: Spontaneous
  Country: FR (occurrence: FR)
  Receive Date: 20170705
  Receipt Date: 20170718
  Transmission Date: 20171127
  Serious: Yes (Other)
  Sender: FDA-Public Use
  Company Number: FR-PFIZER INC-2017284512

PATIENT
  Age: 62 Year
  Sex: Female

DRUGS (9)
  1. BACTRIM [Suspect]
     Active Substance: SULFAMETHOXAZOLE\TRIMETHOPRIM
     Dosage: 1 DF 3 TIMES PER WEEK
     Route: 048
     Dates: start: 20170125
  2. CHOLURSO [Suspect]
     Active Substance: URSODIOL
     Dosage: 250 MG, UNK
     Route: 048
     Dates: start: 20170125
  3. ZELITREX [Suspect]
     Active Substance: VALACYCLOVIR HYDROCHLORIDE
     Dosage: 500 MG, 2X/DAY
     Route: 048
     Dates: start: 20170125
  4. AMLOR [Suspect]
     Active Substance: AMLODIPINE BESYLATE
     Dosage: 5 MG, 1X/DAY
     Route: 048
     Dates: start: 20170125
  5. HYDROCORTISONE. [Suspect]
     Active Substance: HYDROCORTISONE
     Dosage: 20 MG, 2X/DAY
     Route: 048
     Dates: start: 20170125
  6. PANTOPRAZOLE [Suspect]
     Active Substance: PANTOPRAZOLE
     Dosage: 40 MG, DAILY
     Route: 048
     Dates: start: 20170125
  7. MYCOSTATINE [Suspect]
     Active Substance: NYSTATIN
     Dosage: 3 DF, 1X/DAY
     Route: 048
     Dates: start: 20170505, end: 20170601
  8. NEORAL [Suspect]
     Active Substance: CYCLOSPORINE
     Dosage: 75 MG, DAILY
     Route: 048
     Dates: start: 20170125
  9. AMOXICILLIN. [Suspect]
     Active Substance: AMOXICILLIN
     Dosage: 500 MG, 3X/DAY
     Route: 048
     Dates: start: 20170125

REACTIONS (5)
  - Mucosal inflammation [Unknown]
  - Dyspepsia [Unknown]
  - Balance disorder [Unknown]
  - Amnesia [Unknown]
  - Lacrimation increased [Unknown]

NARRATIVE: CASE EVENT DATE: 20170125
